FAERS Safety Report 4598164-2 (Version None)
Quarter: 2005Q1

REPORT INFORMATION
  Report Type: 
  Country: None (occurrence: None)
  Receive Date: 20050204
  Receipt Date: 20040420
  Transmission Date: 20050727
  Serious: Yes (Other)
  Sender: FDA-Public Use
  Company Number: PHEH2004US03567

PATIENT
  Sex: Male

DRUGS (2)
  1. CLOZARIL [Suspect]
     Indication: PSYCHOTIC DISORDER
     Dosage: 200 MG/DAY, ORAL
     Route: 048
  2. LITHIUM (LITHIUM) [Concomitant]

REACTIONS (5)
  - DRUG INEFFECTIVE [None]
  - EYE DISORDER [None]
  - HALLUCINATION [None]
  - INCREASED UPPER AIRWAY SECRETION [None]
  - OCULAR HYPERAEMIA [None]
